FAERS Safety Report 25526331 (Version 1)
Quarter: 2025Q3

REPORT INFORMATION
  Report Type: Spontaneous
  Country: KR (occurrence: KR)
  Receive Date: 20250707
  Receipt Date: 20250707
  Transmission Date: 20251021
  Serious: Yes (Other)
  Sender: PFIZER
  Company Number: KR-PFIZER INC-202500132813

PATIENT
  Age: 67 Year
  Sex: Female

DRUGS (5)
  1. VINCRISTINE SULFATE [Suspect]
     Active Substance: VINCRISTINE SULFATE
     Indication: Chemotherapy
     Dosage: 2 MG, 1X/DAY
     Dates: start: 20240808, end: 20240808
  2. DOXORUBICIN HYDROCHLORIDE [Suspect]
     Active Substance: DOXORUBICIN HYDROCHLORIDE
     Indication: Chemotherapy
     Dosage: 20 MG, 1X/DAY
     Dates: start: 20240808, end: 20240808
  3. DOXORUBICIN HYDROCHLORIDE [Suspect]
     Active Substance: DOXORUBICIN HYDROCHLORIDE
     Dosage: 50 MG, 1X/DAY
     Dates: start: 20240808, end: 20240808
  4. CYCLOPHOSPHAMIDE [Suspect]
     Active Substance: CYCLOPHOSPHAMIDE
     Indication: Chemotherapy
     Dosage: 1100 MG, 1X/DAY
     Dates: start: 20240808, end: 20240808
  5. RITUXIMAB [Suspect]
     Active Substance: RITUXIMAB
     Indication: Chemotherapy
     Dosage: 1400 MG, 1X/DAY
     Dates: start: 20240808, end: 20240808

REACTIONS (1)
  - Neutrophil count decreased [Recovered/Resolved]

NARRATIVE: CASE EVENT DATE: 20240913
